FAERS Safety Report 6313818-5 (Version None)
Quarter: 2009Q3

REPORT INFORMATION
  Report Type: 
  Country: None (occurrence: None)
  Receive Date: 20090814
  Receipt Date: 20090813
  Transmission Date: 20100115
  Serious: Yes (Hospitalization)
  Sender: FDA-Public Use
  Company Number: 2009SP019851

PATIENT
  Age: 40 Year
  Sex: Female

DRUGS (2)
  1. REBETOL [Suspect]
     Indication: HEPATITIS C
     Dosage: 1000 MG; QD; PO
     Route: 048
     Dates: start: 20071101, end: 20090601
  2. REYATAZ [Suspect]
     Indication: HIV INFECTION
     Dosage: 400 MG/KG; QD; PO
     Route: 048
     Dates: start: 20060101

REACTIONS (2)
  - HEPATITIS C [None]
  - RENAL COLIC [None]
